FAERS Safety Report 9281890 (Version 6)
Quarter: 2013Q3

REPORT INFORMATION
  Report Type: Report from Study
  Country: CA (occurrence: CA)
  Receive Date: 20130510
  Receipt Date: 20130711
  Transmission Date: 20140515
  Serious: Yes (Hospitalization, Other)
  Sender: FDA-Public Use
  Company Number: CA-ROCHE-1222578

PATIENT
  Age: 62 Year
  Sex: Female
  Weight: 92.1 kg

DRUGS (6)
  1. ACTEMRA [Suspect]
     Indication: RHEUMATOID ARTHRITIS
     Route: 042
     Dates: start: 20130506
  2. PRIMIDONE [Concomitant]
     Indication: CONVULSION
     Route: 048
  3. TYLENOL #3 (CANADA) [Concomitant]
     Indication: PAIN
     Dosage: 1-2 (UNITS NOT REPORTED)
     Route: 048
  4. PREDNISONE [Concomitant]
  5. ACLASTA [Concomitant]
     Route: 042
  6. REACTINE (CANADA) [Concomitant]
     Indication: PREMEDICATION
     Route: 048
     Dates: start: 20130506

REACTIONS (10)
  - Grand mal convulsion [Recovered/Resolved]
  - Loss of consciousness [Not Recovered/Not Resolved]
  - Convulsion [Recovered/Resolved]
  - Blood pressure increased [Not Recovered/Not Resolved]
  - Heart rate increased [Not Recovered/Not Resolved]
  - Injection site extravasation [Not Recovered/Not Resolved]
  - Fatigue [Not Recovered/Not Resolved]
  - Stress [Recovered/Resolved]
  - Alanine aminotransferase increased [Unknown]
  - Erythema [Recovered/Resolved]
